FAERS Safety Report 14175626 (Version 1)
Quarter: 2017Q4

REPORT INFORMATION
  Report Type: Spontaneous
  Country: US (occurrence: US)
  Receive Date: 20171109
  Receipt Date: 20171109
  Transmission Date: 20180321
  Serious: No
  Sender: FDA-Public Use
  Company Number: US-ALLERGAN-1720439US

PATIENT
  Age: 10 Decade
  Sex: Male

DRUGS (3)
  1. COMBIGAN [Suspect]
     Active Substance: BRIMONIDINE TARTRATE\TIMOLOL MALEATE
     Indication: CORNEAL GRAFT REJECTION
     Dosage: UNK, UNKNOWN
     Route: 047
     Dates: start: 2015, end: 2016
  2. BRIMONIDINE [Concomitant]
     Active Substance: BRIMONIDINE TARTRATE
     Indication: CORNEAL GRAFT REJECTION
     Dosage: UNK
     Route: 047
     Dates: start: 2016
  3. TIMOLOL. [Concomitant]
     Active Substance: TIMOLOL
     Indication: CORNEAL GRAFT REJECTION
     Dosage: UNK
     Route: 047
     Dates: start: 2016

REACTIONS (2)
  - Drug ineffective [Unknown]
  - Off label use [Unknown]
